FAERS Safety Report 9232665 (Version 1)
Quarter: 2013Q2

REPORT INFORMATION
  Report Type: Spontaneous
  Country: IT (occurrence: None)
  Receive Date: 20130412
  Receipt Date: 20130412
  Transmission Date: 20140414
  Serious: No
  Sender: FDA-Public Use
  Company Number: B0881029A

PATIENT
  Sex: 0

DRUGS (3)
  1. MELPHALAN [Suspect]
     Indication: STEM CELL TRANSPLANT
  2. CANCER CHEMOTHERAPY [Suspect]
  3. BENZIDAMINE [Concomitant]

REACTIONS (1)
  - Stomatitis [None]
